FAERS Safety Report 5531136-X (Version None)
Quarter: 2007Q4

REPORT INFORMATION
  Report Type: 
  Country: None (occurrence: None)
  Receive Date: 20071130
  Receipt Date: 20071120
  Transmission Date: 20080405
  Serious: Yes (Other)
  Sender: FDA-Public Use
  Company Number: US-PFIZER INC-2007098658

PATIENT
  Age: 28 Year
  Sex: Male

DRUGS (1)
  1. DILANTIN [Suspect]
     Dosage: FREQ:EVERYDAY

REACTIONS (2)
  - MUSCLE ATROPHY [None]
  - MYALGIA [None]
